FAERS Safety Report 8586783 (Version 5)
Quarter: 2013Q3

REPORT INFORMATION
  Report Type: Spontaneous
  Country: US (occurrence: US)
  Receive Date: 20120530
  Receipt Date: 20130710
  Transmission Date: 20140515
  Serious: Yes (Other)
  Sender: FDA-Public Use
  Company Number: US-JNJFOC-20120517320

PATIENT
  Age: 48 Year
  Sex: Male

DRUGS (4)
  1. RISPERDAL [Suspect]
     Indication: BIPOLAR DISORDER
     Route: 048
     Dates: end: 2009
  2. RISPERDAL [Suspect]
     Indication: BIPOLAR DISORDER
     Route: 048
  3. RISPERDAL [Suspect]
     Indication: BIPOLAR DISORDER
     Route: 048
     Dates: start: 1999
  4. UNSPECIFIED GENERIC RISPERIDONE [Suspect]
     Indication: PRODUCT USED FOR UNKNOWN INDICATION
     Route: 048

REACTIONS (13)
  - Diabetes mellitus [Unknown]
  - Spinal cord compression [Unknown]
  - Pneumonia [Recovered/Resolved]
  - Parkinson^s disease [Not Recovered/Not Resolved]
  - Tardive dyskinesia [Unknown]
  - Quality of life decreased [Unknown]
  - Aspiration [Recovered/Resolved]
  - Feeling abnormal [Recovered/Resolved]
  - Vomiting [Recovered/Resolved]
  - Pain [Unknown]
  - Gynaecomastia [Not Recovered/Not Resolved]
  - Gastric disorder [Unknown]
  - Adverse event [Unknown]
